FAERS Safety Report 6769773-7 (Version None)
Quarter: 2010Q2

REPORT INFORMATION
  Report Type: 
  Country: None (occurrence: None)
  Receive Date: 20100615
  Receipt Date: 20100610
  Transmission Date: 20101027
  Serious: Yes (Other)
  Sender: FDA-Public Use
  Company Number: BR-ROCHE-708767

PATIENT
  Sex: Female
  Weight: 62 kg

DRUGS (4)
  1. RIVOTRIL [Suspect]
     Dosage: STRENGTH: 2 MG, ROUTE: UNKNOWN
     Route: 048
  2. RIVOTRIL [Suspect]
     Dosage: STRENGTH: 0.25MG
     Route: 048
  3. CLONAZEPAM [Suspect]
     Route: 065
  4. SOMALGIN [Concomitant]
     Indication: ANTICOAGULANT THERAPY
     Route: 048
     Dates: start: 20050101

REACTIONS (4)
  - ARTHROPATHY [None]
  - BLOOD PRESSURE INCREASED [None]
  - INSOMNIA [None]
  - VENOUS THROMBOSIS [None]
